FAERS Safety Report 10775605 (Version 4)
Quarter: 2018Q4

REPORT INFORMATION
  Report Type: Spontaneous
  Country: GB (occurrence: GB)
  Receive Date: 20150205
  Receipt Date: 20181218
  Transmission Date: 20190204
  Serious: Yes (Disabling, Other)
  Sender: FDA-Public Use
  Company Number: GB-DEXPHARM-20150048

PATIENT
  Age: 72 Year
  Sex: Female
  Weight: 64.3 kg

DRUGS (11)
  1. ACCORD HEALTHCARE ANASTROZOLE [Suspect]
     Active Substance: ANASTROZOLE
     Indication: BREAST CANCER
     Route: 048
     Dates: start: 20130805, end: 20130902
  2. OMEPRAZOLE. [Suspect]
     Active Substance: OMEPRAZOLE
     Indication: DYSPEPSIA
     Dosage: DAILY DOSE: 2 DF DOSAGE FORM EVERY DAYS
     Dates: start: 20120804, end: 20121226
  3. HUNGARY ANASTROZOLE [Suspect]
     Active Substance: ANASTROZOLE
  4. CYPRUS ANASTROZOLE [Suspect]
     Active Substance: ANASTROZOLE
  5. ESTONIA ANASTROZOLE [Suspect]
     Active Substance: ANASTROZOLE
  6. OMEPRAZOLE. [Suspect]
     Active Substance: OMEPRAZOLE
     Indication: DYSPEPSIA
     Dates: start: 20120604, end: 20120624
  7. RANITIDINE. [Concomitant]
     Active Substance: RANITIDINE
     Route: 048
  8. TEVA UK ANASTROZOLE [Suspect]
     Active Substance: ANASTROZOLE
     Indication: BREAST CANCER
     Route: 048
     Dates: start: 20120402, end: 20130804
  9. ZINC. [Concomitant]
     Active Substance: ZINC
     Route: 048
  10. TEVA UK ANASTROZOLE [Suspect]
     Active Substance: ANASTROZOLE
     Indication: BREAST CANCER
     Route: 048
     Dates: start: 20130902, end: 20140616
  11. VITAMIN B12 [Concomitant]
     Active Substance: CYANOCOBALAMIN

REACTIONS (2)
  - Withdrawal syndrome [Unknown]
  - Drug hypersensitivity [Unknown]

NARRATIVE: CASE EVENT DATE: 20140225
